FAERS Safety Report 14387244 (Version 3)
Quarter: 2018Q2

REPORT INFORMATION
  Report Type: Report from Study
  Country: None (occurrence: US)
  Receive Date: 20180115
  Receipt Date: 20180405
  Transmission Date: 20180711
  Serious: Yes (Hospitalization)
  Sender: FDA-Public Use
  Company Number: US-VIFOR (INTERNATIONAL) INC.-VIT-2018-00357

PATIENT
  Age: 81 Year
  Sex: Female

DRUGS (12)
  1. CALCITRATE PLUS D [Concomitant]
     Dates: start: 20161014
  2. LETROZOLE. [Concomitant]
     Active Substance: LETROZOLE
     Dates: start: 20161014
  3. FOLIC ACID. [Concomitant]
     Active Substance: FOLIC ACID
     Dates: start: 20161014
  4. B12- ACTIVE [Concomitant]
     Dates: start: 20161014
  5. LABETALOL [Concomitant]
     Active Substance: LABETALOL\LABETALOL HYDROCHLORIDE
     Dates: start: 20161014
  6. TRICOR [Concomitant]
     Active Substance: FENOFIBRATE
     Dates: start: 20161014
  7. COLECALCIFEROL [Concomitant]
     Active Substance: CHOLECALCIFEROL
     Dates: start: 20161014
  8. CALCITRIOL. [Concomitant]
     Active Substance: CALCITRIOL
     Dates: start: 20161014
  9. MAGNESIUM HYDROXIDE. [Concomitant]
     Active Substance: MAGNESIUM HYDROXIDE
     Dates: start: 20161014
  10. VELTASSA [Suspect]
     Active Substance: PATIROMER
     Indication: HYPERKALAEMIA
     Route: 048
     Dates: start: 20161015
  11. AMLODIPINE [Concomitant]
     Active Substance: AMLODIPINE BESYLATE
     Dates: start: 20161014, end: 20170530
  12. CITRUCEL [Concomitant]
     Active Substance: METHYLCELLULOSE (4000 MPA.S)
     Dates: start: 20161014

REACTIONS (3)
  - Cardiac failure congestive [Not Recovered/Not Resolved]
  - Myocardial infarction [Not Recovered/Not Resolved]
  - Dyspnoea [Recovered/Resolved]

NARRATIVE: CASE EVENT DATE: 20171210
